FAERS Safety Report 5469108-6 (Version None)
Quarter: 2007Q3

REPORT INFORMATION
  Report Type: 
  Country: None (occurrence: None)
  Receive Date: 20070820
  Receipt Date: 20070716
  Transmission Date: 20080115
  Serious: No
  Sender: FDA-Public Use
  Company Number: WAES 0707USA02533

PATIENT
  Age: 43 Year
  Sex: Female
  Weight: 85.7298 kg

DRUGS (1)
  1. JANUVIA [Suspect]
     Dosage: PO
     Route: 048
     Dates: end: 20070709

REACTIONS (2)
  - FATIGUE [None]
  - INSOMNIA [None]
